FAERS Safety Report 10051599 (Version 2)
Quarter: 2014Q2

REPORT INFORMATION
  Report Type: Spontaneous
  Country: DE (occurrence: DE)
  Receive Date: 20140401
  Receipt Date: 20140401
  Transmission Date: 20141212
  Serious: Yes (Hospitalization)
  Sender: FDA-Public Use
  Company Number: DE-BRISTOL-MYERS SQUIBB COMPANY-20161857

PATIENT
  Age: 72 Year
  Sex: Male
  Weight: 70 kg

DRUGS (1)
  1. ELIQUIS [Suspect]
     Indication: ATRIAL FIBRILLATION
     Dosage: 2X2.5MG TABS , EACH IN MORNING AND EVENING
     Dates: start: 201401, end: 20140110

REACTIONS (2)
  - Bleeding varicose vein [Recovered/Resolved]
  - Cardiac disorder [Unknown]
